FAERS Safety Report 7123858-4 (Version None)
Quarter: 2010Q4

REPORT INFORMATION
  Report Type: 
  Country: None (occurrence: None)
  Receive Date: 20101125
  Receipt Date: 20101119
  Transmission Date: 20110411
  Serious: Yes (Other)
  Sender: FDA-Public Use
  Company Number: PHHY2010US79180

PATIENT
  Sex: Male

DRUGS (1)
  1. TOBI [Suspect]

REACTIONS (3)
  - INCREASED UPPER AIRWAY SECRETION [None]
  - LOBAR PNEUMONIA [None]
  - RESPIRATORY TRACT INFECTION [None]
